FAERS Safety Report 15148894 (Version 1)
Quarter: 2018Q3

REPORT INFORMATION
  Report Type: Spontaneous
  Country: ZA (occurrence: ZA)
  Receive Date: 20180716
  Receipt Date: 20180716
  Transmission Date: 20181010
  Serious: Yes (Other)
  Sender: FDA-Public Use
  Company Number: ZA-PFIZER INC-2018279675

PATIENT
  Age: 75 Year
  Sex: Male

DRUGS (6)
  1. ASPAVOR [Suspect]
     Active Substance: ATORVASTATIN
     Dosage: 10 MG, UNK
  2. ELTROXIN [Suspect]
     Active Substance: LEVOTHYROXINE
     Dosage: 50 UG, UNK
  3. MITIL [Suspect]
     Active Substance: PROCHLORPERAZINE MALEATE
     Dosage: 5 MG, UNK
  4. EPILIZINE [Suspect]
     Active Substance: VALPROATE SODIUM
     Dosage: 200 MG, UNK
  5. PURICOS [Suspect]
     Active Substance: ALLOPURINOL
     Dosage: 100 MG, UNK
  6. SANDOZ OMEPRAZOLE [Suspect]
     Active Substance: OMEPRAZOLE
     Dosage: 20 MG, UNK

REACTIONS (1)
  - Deafness [Unknown]
